FAERS Safety Report 4309496-7 (Version None)
Quarter: 2004Q1

REPORT INFORMATION
  Report Type: 
  Country: None (occurrence: None)
  Receive Date: 20040227
  Receipt Date: 20040217
  Transmission Date: 20041129
  Serious: Yes (Hospitalization, Other)
  Sender: FDA-Public Use
  Company Number: PHBS2004US02370

PATIENT
  Age: 39 Year
  Sex: Female

DRUGS (2)
  1. PARLODEL [Suspect]
     Indication: PROLACTIN-PRODUCING PITUITARY TUMOUR
     Dosage: 2.5 MG, UNK
  2. PROPYLTHIOURACIL [Concomitant]
     Dosage: 50 MG, TID

REACTIONS (15)
  - BLOOD PROLACTIN INCREASED [None]
  - BLOOD THYROID STIMULATING HORMONE INCREASED [None]
  - CAESAREAN SECTION [None]
  - COMPLICATIONS OF MATERNAL EXPOSURE TO THERAPEUTIC DRUGS [None]
  - DRUG EXPOSURE DURING PREGNANCY [None]
  - HEADACHE [None]
  - NEOPLASM PROGRESSION [None]
  - NERVE COMPRESSION [None]
  - NORMAL NEWBORN [None]
  - PITUITARY TUMOUR BENIGN [None]
  - PREGNANCY [None]
  - THYROXINE FREE INCREASED [None]
  - TRI-IODOTHYRONINE INCREASED [None]
  - TUMOUR EXCISION [None]
  - VISUAL FIELD DEFECT [None]
